FAERS Safety Report 15307934 (Version 1)
Quarter: 2018Q3

REPORT INFORMATION
  Report Type: Spontaneous
  Country: US (occurrence: US)
  Receive Date: 20180822
  Receipt Date: 20180822
  Transmission Date: 20181010
  Serious: No
  Sender: FDA-Public Use
  Company Number: US-BECTON DICKINSON-2018BDN00013

PATIENT
  Age: 65 Year
  Sex: Male
  Weight: 71.66 kg

DRUGS (2)
  1. UNSPECIFIED PRODUCTS [Concomitant]
     Active Substance: UNSPECIFIED INGREDIENT
  2. CHLORAPREP [Suspect]
     Active Substance: CHLORHEXIDINE GLUCONATE\ISOPROPYL ALCOHOL
     Indication: INFECTION PROPHYLAXIS
     Dosage: 1 DOSAGE UNITS, ONCE
     Route: 061
     Dates: start: 20171228, end: 20171228

REACTIONS (2)
  - Application site rash [Recovered/Resolved]
  - Application site hypersensitivity [Recovered/Resolved]

NARRATIVE: CASE EVENT DATE: 20171228
